FAERS Safety Report 14053223 (Version 1)
Quarter: 2017Q4

REPORT INFORMATION
  Report Type: Spontaneous
  Country: US (occurrence: US)
  Receive Date: 20171005
  Receipt Date: 20171005
  Transmission Date: 20180321
  Serious: No
  Sender: FDA-Public Use
  Company Number: US-ARBOR PHARMACEUTICALS, LLC-US-2016ARB002259

PATIENT

DRUGS (3)
  1. KLONOPIN [Concomitant]
     Active Substance: CLONAZEPAM
     Indication: PRODUCT USED FOR UNKNOWN INDICATION
     Dosage: 1 MG, QD
  2. EVEKEO [Suspect]
     Active Substance: AMPHETAMINE SULFATE
     Indication: PRODUCT USED FOR UNKNOWN INDICATION
     Dosage: 5 MG, UNK
     Dates: start: 20161012
  3. EVEKEO [Suspect]
     Active Substance: AMPHETAMINE SULFATE
     Dosage: 1.25 MG, UNK
     Dates: start: 20161016

REACTIONS (5)
  - Pressure of speech [Unknown]
  - Feeling abnormal [Not Recovered/Not Resolved]
  - Tachyphrenia [Unknown]
  - Euphoric mood [Unknown]
  - Change in sustained attention [Unknown]

NARRATIVE: CASE EVENT DATE: 20151017
